FAERS Safety Report 9119641 (Version 1)
Quarter: 2013Q1

REPORT INFORMATION
  Report Type: Spontaneous
  Country: US (occurrence: None)
  Receive Date: 20130130
  Receipt Date: 20130130
  Transmission Date: 20140127
  Serious: Yes (Hospitalization)
  Sender: FDA-Public Use
  Company Number: ACO_33968_2013

PATIENT
  Age: 63 Year
  Sex: Male

DRUGS (3)
  1. AMPYRA (DALFAMPRIDINE) TABLET, 10 MG [Suspect]
     Indication: GAIT DISTURBANCE
     Route: 048
     Dates: start: 201201
  2. AVONEX (INTERFERON BETA-1A) [Concomitant]
  3. AVONEX (INTERFERON BETA-1A) [Concomitant]

REACTIONS (2)
  - Surgery [None]
  - Back pain [None]
